FAERS Safety Report 5164862-5 (Version None)
Quarter: 2006Q4

REPORT INFORMATION
  Report Type: 
  Country: None (occurrence: None)
  Receive Date: 20061124
  Receipt Date: 20061108
  Transmission Date: 20070319
  Serious: Yes (Other)
  Sender: FDA-Public Use
  Company Number: 227457

PATIENT
  Age: 69 Year
  Sex: Male

DRUGS (6)
  1. BEVACIZUMAB [Suspect]
     Indication: METASTATIC RENAL CELL CARCINOMA
     Dosage: 10 MG/KG, Q2W, INTRAVENOUS
     Route: 042
     Dates: start: 20050914
  2. INTERFERON ALPHA 2A (INTERFERON ALFA-2A) [Suspect]
     Indication: METASTATIC RENAL CELL CARCINOMA
     Dosage: 3/WEEK, SUBCUTANEOUS
     Route: 058
     Dates: start: 20050914, end: 20060621
  3. MEDICATION (GENERIC COMPONENT(S)) [Concomitant]
  4. HUMAN INSULIN (INSULIN HUMAN) [Concomitant]
  5. INSULIN GLARGINE (INSULIN GLARGINE) [Concomitant]
  6. MAGNESIUM SULFATE [Concomitant]

REACTIONS (6)
  - ASTHENIA [None]
  - BODY TEMPERATURE INCREASED [None]
  - DIZZINESS [None]
  - NERVOUS SYSTEM DISORDER [None]
  - PAIN IN EXTREMITY [None]
  - TREMOR [None]
